FAERS Safety Report 5856241-X (Version None)
Quarter: 2008Q3

REPORT INFORMATION
  Report Type: 
  Country: None (occurrence: None)
  Receive Date: 20080825
  Receipt Date: 20080821
  Transmission Date: 20090109
  Serious: Yes (Death, Hospitalization)
  Sender: FDA-Public Use
  Company Number: A0744151A

PATIENT
  Age: 50 Year
  Sex: Male
  Weight: 175 kg

DRUGS (3)
  1. AVANDAMET [Suspect]
     Indication: DIABETES MELLITUS
     Route: 048
     Dates: start: 20030508, end: 20041001
  2. GLUCOPHAGE [Concomitant]
     Dates: start: 20030101, end: 20030601
  3. METFORMIN [Concomitant]
     Dates: start: 20030702, end: 20070601

REACTIONS (2)
  - CARDIAC FAILURE [None]
  - MYOCARDIAL INFARCTION [None]
